FAERS Safety Report 23548150 (Version 2)
Quarter: 2024Q1

REPORT INFORMATION
  Report Type: Spontaneous
  Country: US (occurrence: US)
  Receive Date: 20240221
  Receipt Date: 20240306
  Transmission Date: 20240410
  Serious: Yes (Other)
  Sender: FDA-Public Use
  Company Number: US-LUPIN PHARMACEUTICALS INC.-2024-01268

PATIENT

DRUGS (3)
  1. DESLORATADINE [Suspect]
     Active Substance: DESLORATADINE
     Indication: Hypersensitivity
     Dosage: 5 MG, QD, 5 MG ONCE A DAY
     Route: 065
  2. DESLORATADINE [Suspect]
     Active Substance: DESLORATADINE
     Dosage: 5 MG, QD, 5 MG ONCE A DAY, SINCE LONG TIME
     Route: 065
  3. ASPIRIN [Concomitant]
     Active Substance: ASPIRIN
     Indication: Anticoagulant therapy
     Dosage: 81 MG, QD, ONCE A DAY
     Route: 065

REACTIONS (2)
  - Neoplasm malignant [Unknown]
  - Recalled product administered [Unknown]
